FAERS Safety Report 15440711 (Version 2)
Quarter: 2018Q4

REPORT INFORMATION
  Report Type: Spontaneous
  Country: JP (occurrence: JP)
  Receive Date: 20180928
  Receipt Date: 20181107
  Transmission Date: 20190204
  Serious: Yes (Death)
  Sender: FDA-Public Use
  Company Number: JP-PFIZER INC-2018388700

PATIENT
  Age: 49 Year
  Sex: Female
  Weight: 52 kg

DRUGS (6)
  1. EFFEXOR [Suspect]
     Active Substance: VENLAFAXINE HYDROCHLORIDE
     Indication: DEPRESSION
     Dosage: 112.5 MG, 2X/DAY
     Route: 048
     Dates: start: 20160803
  2. LEXOTAN [Concomitant]
     Active Substance: BROMAZEPAM
     Indication: DEPRESSION
     Dosage: 2 MG, AS NEEDED
     Route: 048
  3. REFLEX [Concomitant]
     Active Substance: MIRTAZAPINE
     Indication: DEPRESSION
     Dosage: 45 MG, 1X/DAY
     Route: 048
     Dates: start: 201006
  4. MEILAX [Concomitant]
     Active Substance: ETHYL LOFLAZEPATE
     Indication: DEPRESSION
     Dosage: 2 MG, DAILY
     Route: 048
     Dates: start: 20160907
  5. LUNESTA [Concomitant]
     Active Substance: ESZOPICLONE
     Indication: DEPRESSION
     Dosage: 2 MG, DAILY
     Route: 048
     Dates: start: 20161026
  6. SEROQUEL [Concomitant]
     Active Substance: QUETIAPINE FUMARATE
     Indication: DEPRESSION
     Dosage: 100 MG, DAILY
     Route: 048
     Dates: start: 201007

REACTIONS (2)
  - Cardiac disorder [Fatal]
  - Electrocardiogram QT prolonged [Fatal]

NARRATIVE: CASE EVENT DATE: 20180916
